FAERS Safety Report 14554444 (Version 1)
Quarter: 2018Q1

REPORT INFORMATION
  Report Type: Spontaneous
  Country: US (occurrence: US)
  Receive Date: 20180220
  Receipt Date: 20180220
  Transmission Date: 20180509
  Serious: Yes (Hospitalization)
  Sender: FDA-Public Use
  Company Number: US-SA-2018SA036197

PATIENT
  Age: 45 Year
  Sex: Male

DRUGS (2)
  1. INSULIN GLARGINE [Suspect]
     Active Substance: INSULIN GLARGINE
     Indication: HYPERGLYCAEMIC HYPEROSMOLAR NONKETOTIC SYNDROME
     Dosage: DOSE- 0.25 U/KG
     Route: 058
  2. INSULIN HUMAN NOS [Suspect]
     Active Substance: INSULIN HUMAN
     Indication: HYPERGLYCAEMIC HYPEROSMOLAR NONKETOTIC SYNDROME
     Dosage: DOSE-0.1 U/KG
     Route: 042

REACTIONS (11)
  - Central nervous system lesion [Recovered/Resolved]
  - Dysarthria [Recovered/Resolved]
  - Hyperglycaemic hyperosmolar nonketotic syndrome [Unknown]
  - Product use issue [Unknown]
  - Gait disturbance [Not Recovered/Not Resolved]
  - Blood glucose abnormal [Unknown]
  - Blood osmolarity increased [Recovered/Resolved]
  - Osmotic demyelination syndrome [Recovering/Resolving]
  - Condition aggravated [Unknown]
  - Blood creatinine increased [Recovered/Resolved]
  - Inappropriate affect [Recovered/Resolved]
